FAERS Safety Report 8625597-7 (Version None)
Quarter: 2012Q3

REPORT INFORMATION
  Report Type: 
  Country: None (occurrence: None)
  Receive Date: 20120827
  Receipt Date: 20120814
  Transmission Date: 20120928
  Serious: Yes (Death, Hospitalization)
  Sender: FDA-Public Use
  Company Number: IT-PFIZER INC-2012193156

PATIENT
  Age: 51 Year
  Sex: Male

DRUGS (7)
  1. CELECOXIB [Suspect]
     Dosage: UNK
     Route: 065
  2. CITALOPRAM [Suspect]
     Dosage: UNK
     Route: 065
  3. IBUPROFEN [Suspect]
     Dosage: 12 G, SINGLE
     Route: 065
  4. MELOXICAM [Suspect]
     Dosage: UNK
     Route: 065
  5. RISPERIDONE [Suspect]
     Dosage: UNK
     Route: 065
  6. KETOROLAC [Suspect]
     Indication: PRODUCT USED FOR UNKNOWN INDICATION
     Dosage: UNK
     Route: 065
  7. BROMAZEPAM [Suspect]
     Dosage: UNK

REACTIONS (14)
  - MULTIPLE DRUG OVERDOSE INTENTIONAL [None]
  - BRAIN OEDEMA [None]
  - MYOCARDIAL OEDEMA [None]
  - CARDIOMYOPATHY [None]
  - SUICIDE ATTEMPT [None]
  - RESPIRATORY DEPRESSION [None]
  - PULMONARY CONGESTION [None]
  - COMA [None]
  - PULMONARY OEDEMA [None]
  - TOXICITY TO VARIOUS AGENTS [None]
  - HEPATIC CONGESTION [None]
  - HYPOTENSION [None]
  - RENAL VENOUS CONGESTION [None]
  - METABOLIC ACIDOSIS [None]
